FAERS Safety Report 6219161-7 (Version None)
Quarter: 2009Q2

REPORT INFORMATION
  Report Type: 
  Country: None (occurrence: None)
  Receive Date: 20090605
  Receipt Date: 20090605
  Transmission Date: 20091009
  Serious: Yes (Other)
  Sender: FDA-Public Use
  Company Number: None

PATIENT
  Age: 68 Year
  Sex: Male
  Weight: 100.6985 kg

DRUGS (1)
  1. AVODART [Suspect]
     Indication: PROSTATOMEGALY
     Dosage: ONE -1- CAPSULE ONCE A DAY PO
     Route: 048
     Dates: start: 20081127, end: 20090602

REACTIONS (4)
  - GASTRIC DISORDER [None]
  - GYNAECOMASTIA [None]
  - LOSS OF LIBIDO [None]
  - PENIS DISORDER [None]
